FAERS Safety Report 8227777-1 (Version None)
Quarter: 2012Q1

REPORT INFORMATION
  Report Type: 
  Country: None (occurrence: None)
  Receive Date: 20120322
  Receipt Date: 20120314
  Transmission Date: 20120608
  Serious: Yes (Other)
  Sender: FDA-Public Use
  Company Number: US-ALLERGAN-1203709US

PATIENT
  Age: 96 Year
  Sex: Female

DRUGS (2)
  1. LUMIGAN [Suspect]
     Indication: INTRAOCULAR PRESSURE INCREASED
     Dosage: UNK
     Route: 047
  2. ALPHAGAN [Suspect]
     Indication: INTRAOCULAR PRESSURE INCREASED
     Dosage: 1 GTT, TID
     Dates: start: 20120313

REACTIONS (5)
  - RESTLESS LEGS SYNDROME [None]
  - DRY MOUTH [None]
  - INSOMNIA [None]
  - THROMBOSIS [None]
  - INCORRECT DOSE ADMINISTERED [None]
